FAERS Safety Report 7652638-6 (Version None)
Quarter: 2011Q3

REPORT INFORMATION
  Report Type: 
  Country: None (occurrence: None)
  Receive Date: 20110722
  Receipt Date: 20101116
  Transmission Date: 20111222
  Serious: Yes (Hospitalization)
  Sender: FDA-Public Use
  Company Number: UTC-002444

PATIENT
  Age: 23 Year
  Sex: Male
  Weight: 45.4 kg

DRUGS (2)
  1. REVATIO [Concomitant]
  2. REMODULIN [Suspect]
     Indication: COR PULMONALE CHRONIC
     Dosage: 190.08 UG/KG (0.132 UG/KG, 1 IN 1 MIN), SUBCUTANEOUS
     Route: 058
     Dates: start: 20090610

REACTIONS (1)
  - INFUSION SITE PAIN [None]
